FAERS Safety Report 5758675-0 (Version None)
Quarter: 2008Q2

REPORT INFORMATION
  Report Type: 
  Country: None (occurrence: None)
  Receive Date: 20080604
  Receipt Date: 20080520
  Transmission Date: 20081010
  Serious: Yes (Death, Hospitalization)
  Sender: FDA-Public Use
  Company Number: SE-GENENTECH-258046

PATIENT
  Sex: Male

DRUGS (17)
  1. AVASTIN [Suspect]
     Indication: COLORECTAL CANCER METASTATIC
     Dosage: 480 MG, UNK
     Route: 065
     Dates: start: 20080218
  2. CAPECITABINE [Suspect]
     Indication: COLORECTAL CANCER METASTATIC
     Dosage: 3500 MG, QD
     Dates: start: 20080218
  3. OXALIPLATIN [Concomitant]
     Indication: DRUG USE FOR UNKNOWN INDICATION
     Dosage: UNK, UNK
     Route: 065
     Dates: end: 20080131
  4. FOLINIC ACID [Concomitant]
     Indication: DRUG USE FOR UNKNOWN INDICATION
     Dosage: UNK, UNK
     Route: 065
     Dates: end: 20080131
  5. FLUOROURACIL [Concomitant]
     Indication: DRUG USE FOR UNKNOWN INDICATION
     Dosage: UNK, UNK
     Route: 065
     Dates: end: 20080131
  6. PANITUMUMAB [Concomitant]
     Indication: DRUG USE FOR UNKNOWN INDICATION
  7. IRINOTECAN HCL [Concomitant]
     Indication: DRUG USE FOR UNKNOWN INDICATION
  8. ALVEDON [Concomitant]
     Indication: DRUG USE FOR UNKNOWN INDICATION
  9. FENTANYL TRANSDERMAL SYSTEM [Concomitant]
     Indication: DRUG USE FOR UNKNOWN INDICATION
     Dates: end: 20080304
  10. KETOGAN [Concomitant]
     Indication: DRUG USE FOR UNKNOWN INDICATION
     Dates: end: 20080304
  11. DIAZEPAM [Concomitant]
     Indication: DRUG USE FOR UNKNOWN INDICATION
  12. ZOLPIDEM TARTRATE [Concomitant]
     Indication: DRUG USE FOR UNKNOWN INDICATION
  13. BUSCOPAN [Concomitant]
     Indication: DRUG USE FOR UNKNOWN INDICATION
  14. PRIMPERAN TAB [Concomitant]
     Indication: DRUG USE FOR UNKNOWN INDICATION
  15. NULYTELY [Concomitant]
     Indication: DRUG USE FOR UNKNOWN INDICATION
  16. MORPHINE [Concomitant]
     Indication: DRUG USE FOR UNKNOWN INDICATION
  17. MERONEM [Concomitant]
     Indication: DRUG USE FOR UNKNOWN INDICATION

REACTIONS (5)
  - ABDOMINAL PAIN [None]
  - BRONCHOPNEUMONIA [None]
  - COLONIC FISTULA [None]
  - GASTROINTESTINAL PERFORATION [None]
  - SIGMOIDITIS [None]
